FAERS Safety Report 12797033 (Version 1)
Quarter: 2016Q3

REPORT INFORMATION
  Report Type: Spontaneous
  Country: US (occurrence: US)
  Receive Date: 20160930
  Receipt Date: 20160930
  Transmission Date: 20161109
  Serious: No
  Sender: FDA-Public Use
  Company Number: US-PFIZER INC-2016451639

PATIENT
  Age: 71 Year
  Sex: Female
  Weight: 82 kg

DRUGS (4)
  1. TELMISARTAN. [Concomitant]
     Active Substance: TELMISARTAN
     Indication: HYPERTENSION
     Dosage: 80MG, DAILY EVERY MORNING
     Route: 048
  2. VITAMIN D [Concomitant]
     Active Substance: CHOLECALCIFEROL
     Dosage: 5000 IU, DAILY SOFT GEL EVERY MORNING
     Route: 048
  3. ATORVASTATIN CALCIUM. [Suspect]
     Active Substance: ATORVASTATIN CALCIUM
     Indication: BLOOD CHOLESTEROL
     Dosage: 20MG TABLET DAILY AT NIGHT
     Route: 048
  4. VITAMIN B [Concomitant]
     Active Substance: VITAMIN B
     Dosage: 1 DF, 1X/DAY
     Route: 048

REACTIONS (3)
  - Middle insomnia [Recovered/Resolved]
  - Dyspnoea [Recovered/Resolved]
  - Intentional product misuse [Not Recovered/Not Resolved]

NARRATIVE: CASE EVENT DATE: 2016
